FAERS Safety Report 9311166 (Version 2)
Quarter: 2013Q4

REPORT INFORMATION
  Report Type: Spontaneous
  Country: US (occurrence: US)
  Receive Date: 20130528
  Receipt Date: 20131025
  Transmission Date: 20140711
  Serious: Yes (Hospitalization, Other)
  Sender: FDA-Public Use
  Company Number: US-BAYER-2013-061978

PATIENT
  Age: 29 Year
  Sex: Female
  Weight: 67.12 kg

DRUGS (7)
  1. MIRENA [Suspect]
     Indication: CONTRACEPTION
     Dosage: 20 MCG/24HR, CONT
     Route: 015
     Dates: start: 20081101, end: 20110618
  2. MIRENA [Suspect]
     Indication: MENORRHAGIA
  3. PREDNISONE [Concomitant]
     Indication: SARCOIDOSIS
     Dosage: UNK
     Dates: start: 2010, end: 2012
  4. ALBUTEROL [Concomitant]
     Indication: SARCOIDOSIS
     Dosage: UNK
     Dates: start: 2010, end: 2012
  5. SYMBICORT [Concomitant]
     Indication: SARCOIDOSIS
     Dosage: UNK
     Dates: start: 2010, end: 2012
  6. OMEPRAZOLE [Concomitant]
     Indication: SARCOIDOSIS
     Dosage: UNK
     Dates: start: 2010, end: 2012
  7. MAGNESIUM OXIDE [Concomitant]
     Indication: SARCOIDOSIS
     Dosage: UNK
     Dates: start: 2010, end: 2012

REACTIONS (13)
  - Ectopic pregnancy with contraceptive device [None]
  - Drug ineffective [None]
  - Uterine perforation [None]
  - Uterine haemorrhage [None]
  - Pelvic pain [None]
  - Abdominal pain lower [None]
  - Abdominal distension [None]
  - Pain [None]
  - Injury [None]
  - Emotional distress [None]
  - Infertility female [None]
  - Depression [None]
  - Mental disorder [None]
